FAERS Safety Report 15580598 (Version 1)
Quarter: 2018Q4

REPORT INFORMATION
  Report Type: Other
  Country: US (occurrence: US)
  Receive Date: 20181102
  Receipt Date: 20181102
  Transmission Date: 20190205
  Serious: No
  Sender: FDA-Public Use
  Company Number: US-MERZ NORTH AMERICA, INC.-18MRZ-00573

PATIENT
  Sex: Female

DRUGS (1)
  1. XEOMIN [Suspect]
     Active Substance: INCOBOTULINUMTOXINA
     Indication: SKIN COSMETIC PROCEDURE
     Dosage: 23-25 UNITS
     Dates: start: 20180922, end: 20180922

REACTIONS (3)
  - Muscle spasms [Unknown]
  - Facial paralysis [Recovering/Resolving]
  - Atrophy [Not Recovered/Not Resolved]
